FAERS Safety Report 23991837 (Version 1)
Quarter: 2024Q2

REPORT INFORMATION
  Report Type: Spontaneous
  Country: JP (occurrence: JP)
  Receive Date: 20240619
  Receipt Date: 20240619
  Transmission Date: 20240715
  Serious: Yes (Other)
  Sender: FDA-Public Use
  Company Number: JP-BEH-2024172183

PATIENT
  Age: 67 Year
  Sex: Male
  Weight: 66 kg

DRUGS (8)
  1. KCENTRA [Suspect]
     Active Substance: COAGULATION FACTOR IX HUMAN\COAGULATION FACTOR VII HUMAN\COAGULATION FACTOR X HUMAN\PROTEIN C\PROTEI
     Indication: Traumatic haemorrhage
     Dosage: 1500, SINGLE (ADMINISTERED AT 12:00 PM)
     Route: 042
     Dates: start: 20240510, end: 20240510
  2. KCENTRA [Suspect]
     Active Substance: COAGULATION FACTOR IX HUMAN\COAGULATION FACTOR VII HUMAN\COAGULATION FACTOR X HUMAN\PROTEIN C\PROTEI
     Indication: Traumatic haemorrhage
     Dosage: 1500, SINGLE (ADMINISTERED AT 12:00 PM)
     Route: 042
     Dates: start: 20240510, end: 20240510
  3. MENATETRENONE [Concomitant]
     Active Substance: MENATETRENONE
     Indication: Haemorrhage
     Dosage: 50 MG, SINGLE (ADMINISTERED AT 12:00 PM)
     Route: 042
     Dates: start: 20240510, end: 20240510
  4. MENATETRENONE [Concomitant]
     Active Substance: MENATETRENONE
     Dosage: 30 MG, SINGLE (ADMINISTERED AT 3:00 PM)
     Route: 042
     Dates: start: 20240510, end: 20240510
  5. WARFARIN [Concomitant]
     Active Substance: WARFARIN
     Dosage: UNK
     Route: 048
  6. WARFARIN [Concomitant]
     Active Substance: WARFARIN
     Dosage: UNK
     Route: 048
     Dates: start: 20240515
  7. WARFARIN [Concomitant]
     Active Substance: WARFARIN
     Dosage: 6 MG
     Route: 048
     Dates: start: 20240527
  8. WARFARIN [Concomitant]
     Active Substance: WARFARIN
     Dosage: 7 MG
     Route: 048
     Dates: start: 20240529

REACTIONS (2)
  - Drug ineffective [Unknown]
  - Cerebral haematoma [Unknown]

NARRATIVE: CASE EVENT DATE: 20240510
